FAERS Safety Report 10789282 (Version 1)
Quarter: 2015Q1

REPORT INFORMATION
  Report Type: Spontaneous
  Country: US (occurrence: US)
  Receive Date: 20150212
  Receipt Date: 20150212
  Transmission Date: 20150721
  Serious: No
  Sender: FDA-Public Use
  Company Number: US-GLAXOSMITHKLINE-A1056820A

PATIENT

DRUGS (1)
  1. ARIXTRA [Suspect]
     Active Substance: FONDAPARINUX SODIUM
     Indication: LOWER LIMB FRACTURE
     Dosage: 2.5 MG/0.5 ML. UNKNOWN DOSING.
     Route: 065
     Dates: start: 20131212

REACTIONS (3)
  - Lower limb fracture [Unknown]
  - Adverse event [Unknown]
  - Drug administration error [Unknown]
